FAERS Safety Report 13561151 (Version 4)
Quarter: 2017Q3

REPORT INFORMATION
  Report Type: Spontaneous
  Country: US (occurrence: US)
  Receive Date: 20170518
  Receipt Date: 20170901
  Transmission Date: 20171127
  Serious: No
  Sender: FDA-Public Use
  Company Number: US-009507513-1705USA007932

PATIENT
  Age: 2 Year
  Sex: Female
  Weight: 13.15 kg

DRUGS (3)
  1. VARIVAX [Suspect]
     Active Substance: VARICELLA-ZOSTER VIRUS STRAIN OKA/MERCK LIVE ANTIGEN
     Indication: PROPHYLAXIS
     Route: 058
     Dates: start: 20151001, end: 20151001
  2. STERILE DILUENT [Suspect]
     Active Substance: WATER
     Indication: PROPHYLAXIS
  3. PREVNAR 13 [Suspect]
     Active Substance: PNEUMOCOCCAL 13-VALENT CONJUGATE VACCINE
     Indication: PROPHYLAXIS
     Dosage: UNK
     Route: 058
     Dates: start: 20151001

REACTIONS (2)
  - Herpes zoster [Recovered/Resolved]
  - Varicella virus test positive [Recovered/Resolved]

NARRATIVE: CASE EVENT DATE: 20170510
